FAERS Safety Report 16962707 (Version 1)
Quarter: 2019Q4

REPORT INFORMATION
  Report Type: Spontaneous
  Country: US (occurrence: US)
  Receive Date: 20191025
  Receipt Date: 20191025
  Transmission Date: 20200122
  Serious: No
  Sender: FDA-Public Use
  Company Number: US-ASTRAZENECA-2019SF42062

PATIENT
  Sex: Female
  Weight: 83.9 kg

DRUGS (2)
  1. BYDUREON BCISE [Suspect]
     Active Substance: EXENATIDE
     Route: 058
     Dates: start: 2015
  2. BYDUREON [Concomitant]
     Active Substance: EXENATIDE

REACTIONS (2)
  - Injection site extravasation [Unknown]
  - Product dose omission [Unknown]
